FAERS Safety Report 6190051-1 (Version None)
Quarter: 2009Q2

REPORT INFORMATION
  Report Type: 
  Country: None (occurrence: None)
  Receive Date: 20090512
  Receipt Date: 20090512
  Transmission Date: 20091009
  Serious: Yes (Death)
  Sender: FDA-Public Use
  Company Number: None

PATIENT
  Age: 84 Year
  Sex: Female

DRUGS (11)
  1. AVELOX [Suspect]
     Indication: RESPIRATORY DISORDER
     Dosage: ? OTO PO
     Route: 048
     Dates: start: 20090401
  2. PULMICORT-100 [Concomitant]
  3. CELEBREX [Concomitant]
  4. FORMOTEROL FUMARATE [Concomitant]
  5. LASIX [Concomitant]
  6. MUCINEX [Concomitant]
  7. ATROVENT NEBS [Concomitant]
  8. MEGACE [Concomitant]
  9. METOPROLOL [Concomitant]
  10. MULTIVITIMIN [Concomitant]
  11. PREDNISONE [Concomitant]

REACTIONS (4)
  - ANOXIC ENCEPHALOPATHY [None]
  - DEPRESSED LEVEL OF CONSCIOUSNESS [None]
  - RESPIRATORY ARREST [None]
  - SEPSIS [None]
